FAERS Safety Report 6603867-1 (Version None)
Quarter: 2010Q1

REPORT INFORMATION
  Report Type: 
  Country: None (occurrence: None)
  Receive Date: 20100226
  Receipt Date: 20090227
  Transmission Date: 20100710
  Serious: No
  Sender: FDA-Public Use
  Company Number: A0770916A

PATIENT
  Sex: Female

DRUGS (3)
  1. LAMICTAL CD [Suspect]
     Indication: BIPOLAR DISORDER
     Dosage: 50MG AT NIGHT
     Route: 048
     Dates: start: 20090202, end: 20090224
  2. SEROQUEL [Concomitant]
     Indication: BIPOLAR DISORDER
  3. PROTONIX [Concomitant]

REACTIONS (1)
  - DRUG SCREEN POSITIVE [None]
